FAERS Safety Report 9183091 (Version 1)
Quarter: 2012Q4

REPORT INFORMATION
  Report Type: 
  Country: US (occurrence: US)
  Receive Date: 20121031
  Receipt Date: 20121031
  Transmission Date: 20130627
  Serious: Yes (Hospitalization)
  Sender: FDA-Public Use
  Company Number: US-BAYER-2012-113727

PATIENT
  Age: 31 Year
  Sex: Female
  Weight: 114.29 kg

DRUGS (19)
  1. OCELLA [Suspect]
  2. BACTRIM DS [Concomitant]
     Route: 048
  3. HYDROCODONE [Concomitant]
     Dosage: 7.5/325 [times] 3
  4. MOTRIN [Concomitant]
     Dosage: 600 mg, every 6 hours
  5. LEXAPRO [Concomitant]
     Dosage: 20 mg, UNK
  6. AMBIEN [Concomitant]
  7. ACETAMINOPHEN W/CODEINE [Concomitant]
     Dosage: 300-30
  8. ZOLPIDEM [Concomitant]
     Dosage: 10 mg, UNK
  9. PRILOSEC [Concomitant]
     Dosage: 20 mg, daily
  10. NORCO [Concomitant]
  11. GI COCKTAIL [Concomitant]
     Route: 048
  12. ZANTAC [Concomitant]
     Dosage: 150 mg, UNK
     Route: 048
  13. DEMEROL [Concomitant]
     Dosage: 125 mg, UNK
     Route: 030
  14. PHENERGAN [Concomitant]
     Dosage: 50 mg, UNK
     Route: 030
  15. TORADOL [Concomitant]
     Dosage: 60 mg, UNK
     Route: 030
  16. PEPTO-BISMOL [Concomitant]
  17. TUMS [CALCIUM CARBONATE] [Concomitant]
  18. ROLAIDS [DIHYDROXYALUMINUM SODIUM CARBONATE] [Concomitant]
  19. ANTIBIOTICS [Concomitant]
     Indication: SINUS INFECTION
     Dosage: UNK
     Dates: start: 20110919

REACTIONS (1)
  - Deep vein thrombosis [Recovered/Resolved]
